FAERS Safety Report 21915680 (Version 1)
Quarter: 2023Q1

REPORT INFORMATION
  Report Type: Spontaneous
  Country: DE (occurrence: DE)
  Receive Date: 20230126
  Receipt Date: 20230126
  Transmission Date: 20230418
  Serious: No
  Sender: FDA-Public Use
  Company Number: DE-PFIZER INC-202201365730

PATIENT
  Age: 50 Year
  Sex: Female
  Weight: 92 kg

DRUGS (2)
  1. MEDROXYPROGESTERONE ACETATE [Suspect]
     Active Substance: MEDROXYPROGESTERONE ACETATE
     Indication: Menstrual disorder
     Dosage: 1 ML, CYCLIC (EVERY 12 WEEKS)
     Route: 030
     Dates: start: 1999
  2. MEDROXYPROGESTERONE ACETATE [Suspect]
     Active Substance: MEDROXYPROGESTERONE ACETATE
     Dosage: 1 ML, CYCLIC (EVERY 12 WEEKS)
     Route: 058
     Dates: start: 20221209, end: 20221209

REACTIONS (6)
  - Weight increased [Unknown]
  - Haematocrit increased [Unknown]
  - Mean cell haemoglobin concentration decreased [Unknown]
  - Off label use [Unknown]
  - Incorrect route of product administration [Unknown]
  - Drug dose omission by device [Unknown]

NARRATIVE: CASE EVENT DATE: 20210101
